FAERS Safety Report 4409576-1 (Version None)
Quarter: 2004Q3

REPORT INFORMATION
  Report Type: 
  Country: None (occurrence: None)
  Receive Date: 20040726
  Receipt Date: 20040713
  Transmission Date: 20050211
  Serious: Yes (Other)
  Sender: FDA-Public Use
  Company Number: HQWYE176316JUL04

PATIENT
  Sex: Female

DRUGS (1)
  1. ADVIL PEDIATRIC DROPS (IBUPROFEN, UNSPEC) [Suspect]
     Indication: PATENT DUCTUS ARTERIOSUS
     Dosage: SEE IMAGE

REACTIONS (2)
  - INTESTINAL PERFORATION [None]
  - NEONATAL DISORDER [None]
